FAERS Safety Report 19475689 (Version 1)
Quarter: 2021Q2

REPORT INFORMATION
  Report Type: Spontaneous
  Country: JP (occurrence: JP)
  Receive Date: 20210629
  Receipt Date: 20210629
  Transmission Date: 20210717
  Serious: Yes (Other)
  Sender: FDA-Public Use
  Company Number: JP-ROCHE-2858911

PATIENT

DRUGS (7)
  1. RIVOTRIL [Suspect]
     Active Substance: CLONAZEPAM
     Dosage: ONE?THIRD OF THE?PRESCRIBED DOSES
     Route: 048
  2. RIVOTRIL [Suspect]
     Active Substance: CLONAZEPAM
     Dosage: DOSING FREQUENCY OF RIVOTRIL, HALF A TABLET, WAS CHANGED TO TWICE A DAY.
     Route: 048
     Dates: start: 202101, end: 202104
  3. CONSTAN (JAPAN) [Suspect]
     Active Substance: ALPRAZOLAM
     Indication: PRODUCT USED FOR UNKNOWN INDICATION
     Route: 048
  4. MEILAX [Suspect]
     Active Substance: ETHYL LOFLAZEPATE
     Indication: PRODUCT USED FOR UNKNOWN INDICATION
     Route: 048
  5. RIVOTRIL [Suspect]
     Active Substance: CLONAZEPAM
     Indication: PRODUCT USED FOR UNKNOWN INDICATION
     Dosage: HALF A TABLET
     Route: 048
  6. RIVOTRIL [Suspect]
     Active Substance: CLONAZEPAM
     Route: 048
     Dates: start: 20210602
  7. LEXOTAN [Suspect]
     Active Substance: BROMAZEPAM
     Indication: PRODUCT USED FOR UNKNOWN INDICATION
     Dosage: THE DOSE OF THE TABLET MIGHT HAVE BEEN 2MG OR 5 MG, AS I REMEMBERED
     Route: 048

REACTIONS (3)
  - Drug abuse [Unknown]
  - Stupor [Unknown]
  - Withdrawal syndrome [Unknown]
